FAERS Safety Report 10486111 (Version 1)
Quarter: 2014Q4

REPORT INFORMATION
  Report Type: Spontaneous
  Country: FR (occurrence: FR)
  Receive Date: 20141001
  Receipt Date: 20141001
  Transmission Date: 20150528
  Serious: Yes (Other)
  Sender: FDA-Public Use
  Company Number: FR-AUROBINDO-AUR-APL-2014-10322

PATIENT
  Age: 32 Year
  Sex: Male

DRUGS (14)
  1. LAMOTRIGINE ARROW 25MG [Suspect]
     Active Substance: LAMOTRIGINE
     Dosage: 100 MG, TWO TIMES A DAY
     Route: 048
     Dates: start: 20140602, end: 20140604
  2. LEPTICUR [Concomitant]
     Active Substance: TROPATEPINE HYDROCHLORIDE
     Indication: PRODUCT USED FOR UNKNOWN INDICATION
     Route: 065
  3. LAMOTRIGINE ARROW 25MG [Suspect]
     Active Substance: LAMOTRIGINE
     Indication: PRODUCT USED FOR UNKNOWN INDICATION
     Dosage: 25 MG, DAILY
     Route: 048
     Dates: start: 20140403
  4. THERALENE [Suspect]
     Active Substance: TRIMEPRAZINE
     Indication: PSYCHOTIC DISORDER
     Dosage: 4 %, UNK
     Route: 065
     Dates: start: 201403, end: 201404
  5. CLOZAPINE MYLAN [Suspect]
     Active Substance: CLOZAPINE
     Indication: PSYCHOTIC DISORDER
     Dosage: 25 MG, UNK
     Route: 065
     Dates: start: 201403, end: 201404
  6. LAMOTRIGINE ARROW 25MG [Suspect]
     Active Substance: LAMOTRIGINE
     Dosage: 25 MG, TWO TIMES A DAY
     Route: 048
     Dates: start: 20140411
  7. LANSOYL [Concomitant]
     Active Substance: MINERAL OIL
     Indication: PRODUCT USED FOR UNKNOWN INDICATION
     Route: 065
  8. TERCIAN                            /00759301/ [Suspect]
     Active Substance: CYAMEMAZINE
     Indication: PSYCHOTIC DISORDER
     Dosage: UNK
     Route: 065
     Dates: start: 201403
  9. IMOVANE [Suspect]
     Active Substance: ZOPICLONE
     Indication: PRODUCT USED FOR UNKNOWN INDICATION
     Dosage: UNK
     Route: 048
     Dates: end: 201404
  10. UVEDOSE [Concomitant]
     Active Substance: CHOLECALCIFEROL
     Indication: PRODUCT USED FOR UNKNOWN INDICATION
     Route: 065
  11. LAMOTRIGINE ARROW 25MG [Suspect]
     Active Substance: LAMOTRIGINE
     Dosage: 200 MG, TWO TIMES A DAY
     Route: 048
     Dates: start: 20140527
  12. LAMOTRIGINE ARROW 25MG [Suspect]
     Active Substance: LAMOTRIGINE
     Dosage: 50 MG, TWO TIMES A DAY
     Route: 048
     Dates: start: 20140418
  13. LAMOTRIGINE ARROW 25MG [Suspect]
     Active Substance: LAMOTRIGINE
     Dosage: 100 MG, TWO TIMES A DAY
     Route: 048
     Dates: start: 20140513
  14. VALIUM [Suspect]
     Active Substance: DIAZEPAM
     Indication: PSYCHOTIC DISORDER
     Dosage: 15 GTT, 3 TIMES A DAY
     Route: 048

REACTIONS (5)
  - Blister [Unknown]
  - Alopecia [Unknown]
  - White blood cell count increased [Recovered/Resolved]
  - C-reactive protein increased [Recovered/Resolved]
  - Dermatitis bullous [Unknown]

NARRATIVE: CASE EVENT DATE: 201405
